FAERS Safety Report 25519455 (Version 2)
Quarter: 2025Q4

REPORT INFORMATION
  Report Type: Spontaneous
  Country: EU (occurrence: EU)
  Receive Date: 20250704
  Receipt Date: 20251225
  Transmission Date: 20260117
  Serious: Yes (Other)
  Sender: JOHNSON AND JOHNSON
  Company Number: None

PATIENT
  Age: 28 Year
  Sex: Female

DRUGS (1)
  1. SPRAVATO [Suspect]
     Active Substance: ESKETAMINE
     Indication: Major depression
     Dosage: 20 ADMINISTRATIONS
     Route: 045
     Dates: start: 20250203, end: 20250528

REACTIONS (1)
  - Intracranial pressure increased [Recovering/Resolving]

NARRATIVE: CASE EVENT DATE: 20250401
